FAERS Safety Report 15496886 (Version 1)
Quarter: 2018Q4

REPORT INFORMATION
  Report Type: Spontaneous
  Country: ES (occurrence: ES)
  Receive Date: 20181015
  Receipt Date: 20181015
  Transmission Date: 20190205
  Serious: Yes (Other)
  Sender: FDA-Public Use
  Company Number: ES-HETERO CORPORATE-HET2018ES01047

PATIENT
  Age: 51 Year
  Sex: Male

DRUGS (4)
  1. AMIKACIN                           /00391002/ [Suspect]
     Active Substance: AMIKACIN
     Indication: BRAIN ABSCESS
  2. LINEZOLID. [Suspect]
     Active Substance: LINEZOLID
     Indication: BRAIN ABSCESS
     Dosage: 600 MG (12 HOUR)
     Route: 065
  3. LINEZOLID. [Suspect]
     Active Substance: LINEZOLID
     Indication: NOCARDIOSIS
  4. AMIKACIN                           /00391002/ [Suspect]
     Active Substance: AMIKACIN
     Indication: NOCARDIOSIS
     Dosage: 1000 MG (12 HOUR)
     Route: 065

REACTIONS (1)
  - Ototoxicity [Unknown]
